FAERS Safety Report 17687157 (Version 1)
Quarter: 2020Q2

REPORT INFORMATION
  Report Type: Spontaneous
  Country: US (occurrence: US)
  Receive Date: 20200421
  Receipt Date: 20200421
  Transmission Date: 20200714
  Serious: Yes (Life-Threatening, Hospitalization, Other)
  Sender: FDA-Public Use
  Company Number: US-GLENMARK PHARMACEUTICALS-2020GMK047386

PATIENT
  Age: 57 Year
  Sex: Female

DRUGS (1)
  1. VERAPAMIL [Suspect]
     Active Substance: VERAPAMIL HYDROCHLORIDE
     Indication: PRODUCT USED FOR UNKNOWN INDICATION
     Dosage: 8.5 GRAM IN TOTAL
     Route: 065

REACTIONS (10)
  - Vasoplegia syndrome [Unknown]
  - Hypotension [Unknown]
  - Rhythm idioventricular [Unknown]
  - Mitral valve incompetence [Unknown]
  - Atrioventricular block complete [Unknown]
  - Cardiac septal hypertrophy [Unknown]
  - Left ventricle outflow tract obstruction [Unknown]
  - Toxicity to various agents [Unknown]
  - Cardiac failure high output [Unknown]
  - Intentional overdose [Unknown]
